FAERS Safety Report 6762113-9 (Version None)
Quarter: 2010Q2

REPORT INFORMATION
  Report Type: 
  Country: None (occurrence: None)
  Receive Date: 20100503
  Receipt Date: 20100416
  Transmission Date: 20101027
  Serious: Yes (Hospitalization, Other)
  Sender: FDA-Public Use
  Company Number: 20100416CINRY1455

PATIENT
  Age: 58 Year
  Sex: Male

DRUGS (2)
  1. CINRYZE [Suspect]
     Indication: HEREDITARY ANGIOEDEMA
     Dosage: 1000 UNIT, 1 IN 1 WK, INTRAVENOUS
     Route: 042
     Dates: start: 20090101
  2. CINRYZE [Suspect]
     Indication: PROPHYLAXIS
     Dosage: 1000 UNIT, 1 IN 1 WK, INTRAVENOUS
     Route: 042
     Dates: start: 20090101

REACTIONS (5)
  - ABDOMINAL DISCOMFORT [None]
  - HEREDITARY ANGIOEDEMA [None]
  - NAUSEA [None]
  - PAIN [None]
  - SWELLING [None]
